FAERS Safety Report 8762428 (Version 1)
Quarter: 2012Q4

REPORT INFORMATION
  Report Type: 
  Country: US (occurrence: US)
  Receive Date: 20120829
  Receipt Date: 20120829
  Transmission Date: 20130627
  Serious: No
  Sender: FDA-Public Use
  Company Number: US-PFIZER INC-2012210336

PATIENT
  Age: 64 Year
  Sex: Male
  Weight: 89.25 kg

DRUGS (18)
  1. EFFEXOR XR [Suspect]
     Dosage: 75 mg, one cap daily
  2. LYRICA [Suspect]
     Dosage: 75 mg, 3x/day (one cap tid)
  3. FOLIC ACID [Concomitant]
     Dosage: 1 mg, 1x/day (one in the am)
  4. LISINOPRIL [Concomitant]
     Dosage: 10 mg, Take one tablet daily
     Route: 048
  5. PLAVIX [Concomitant]
     Dosage: 75 mg, 1x/day (one in the am)
  6. NOVOLOG [Concomitant]
     Dosage: 100 UNIT/ML SOLN take 15 Units 3x/day with each main meal
  7. OXYCODONE HYDROCHLORIDE [Concomitant]
     Dosage: 30 mg, 1-2 x daily
  8. OXYCONTIN [Concomitant]
     Dosage: 80 mg, XR12H-TAB 1-3x daily
  9. METOPROLOL TARTRATE [Concomitant]
     Dosage: 25 mg, 1x/day (1 tab once daily)
  10. LEVOTHYROXINE SODIUM [Concomitant]
     Dosage: 25 ug, one tablet by mouth daily on an empty stomach
     Route: 048
  11. LANTUS SOLOSTAR [Concomitant]
     Dosage: 100 UNIT/ML SOLN, take 50 units at bedtime
  12. MIRALAX [Concomitant]
     Dosage: as needed
  13. SIMVASTATIN [Concomitant]
     Dosage: 20 mg, 1x/day (1 tab once daily)
  14. ATIVAN [Concomitant]
     Dosage: 0.5 mg, 1 tablet daily at bedtime
     Route: 048
  15. MULTIVITAMINS [Concomitant]
     Dosage: 1 DF, 1x/day
  16. ASPIRIN EC LOW STRENGTH [Concomitant]
     Dosage: 81 mg, 1x/day (one a day)
  17. AMITRIPTYLINE HYDROCHLORIDE [Concomitant]
     Dosage: 75 mg, 1 tab nightly
  18. METFORMIN HYDROCHLORIDE [Concomitant]
     Dosage: 500 mg, 2x/day (1 tab twice daily)

REACTIONS (1)
  - Insomnia [Unknown]
